FAERS Safety Report 13778210 (Version 3)
Quarter: 2017Q3

REPORT INFORMATION
  Report Type: Report from Study
  Country: DE (occurrence: DE)
  Receive Date: 20170721
  Receipt Date: 20170918
  Transmission Date: 20171127
  Serious: Yes (Hospitalization)
  Sender: FDA-Public Use
  Company Number: DE-BIOGEN-2017BI00358651

PATIENT
  Age: 42 Year
  Sex: Female

DRUGS (1)
  1. ZINBRYTA [Suspect]
     Active Substance: DACLIZUMAB
     Indication: MULTIPLE SCLEROSIS
     Route: 058
     Dates: start: 20160829, end: 20170629

REACTIONS (9)
  - Syncope [Recovered/Resolved with Sequelae]
  - Hypertension [Unknown]
  - Autoimmune thyroiditis [Not Recovered/Not Resolved]
  - Tachycardia [Recovered/Resolved with Sequelae]
  - Depressed mood [Not Recovered/Not Resolved]
  - Blood cholesterol increased [Not Recovered/Not Resolved]
  - Heart rate increased [Unknown]
  - Sedation [Recovered/Resolved]
  - Poor quality sleep [Not Recovered/Not Resolved]

NARRATIVE: CASE EVENT DATE: 2017
